FAERS Safety Report 25494078 (Version 1)
Quarter: 2025Q2

REPORT INFORMATION
  Report Type: Spontaneous
  Country: US (occurrence: US)
  Receive Date: 20250630
  Receipt Date: 20250630
  Transmission Date: 20250717
  Serious: Yes (Death, Other)
  Sender: LABORATOIRES SERB
  Company Number: US-SERB S.A.S.-2179624

PATIENT
  Age: 59 Year
  Sex: Female

DRUGS (8)
  1. CYANOKIT [Suspect]
     Active Substance: HYDROXOCOBALAMIN
     Indication: Vasodilatation
  2. CYANOKIT [Suspect]
     Active Substance: HYDROXOCOBALAMIN
     Indication: Vasoplegia syndrome
  3. NIMODIPINE [Concomitant]
     Active Substance: NIMODIPINE
  4. VASOPRESSIN [Concomitant]
     Active Substance: VASOPRESSIN
  5. PROPOFOL [Concomitant]
     Active Substance: PROPOFOL
  6. EPINEPHRINE [Concomitant]
     Active Substance: EPINEPHRINE
  7. NOREPINEPHRINE [Concomitant]
     Active Substance: NOREPINEPHRINE
  8. CLEVIDIPINE [Concomitant]
     Active Substance: CLEVIDIPINE

REACTIONS (5)
  - Death [Fatal]
  - Drug effective for unapproved indication [Unknown]
  - Product use in unapproved indication [Unknown]
  - Vasospasm [Unknown]
  - Cerebral haemorrhage [Unknown]
